FAERS Safety Report 9304035 (Version 1)
Quarter: 2013Q2

REPORT INFORMATION
  Report Type: Spontaneous
  Country: US (occurrence: US)
  Receive Date: 20130522
  Receipt Date: 20130522
  Transmission Date: 20140414
  Serious: Yes (Hospitalization)
  Sender: FDA-Public Use
  Company Number: US-BAYER-2013-061572

PATIENT
  Age: 59 Year
  Sex: Male
  Weight: 98 kg

DRUGS (9)
  1. BAYER GENUINE ASPIRIN ORIGINAL STRENGTH [Suspect]
     Dosage: UNK
     Dates: start: 20110527, end: 20110622
  2. CLOPIDOGREL [Interacting]
     Dosage: UNK
     Dates: start: 20110526
  3. CLOPIDOGREL [Interacting]
     Dosage: UNK
     Dates: start: 20110527, end: 20110621
  4. COREG [Concomitant]
  5. NORVASC [Concomitant]
  6. PROTONIX [Concomitant]
  7. LIPITOR [Concomitant]
  8. NIASPAN [Concomitant]
  9. LISINOPRIL [Concomitant]

REACTIONS (7)
  - Subdural haematoma [Recovered/Resolved]
  - Subdural haemorrhage [Recovered/Resolved]
  - Vomiting [Recovered/Resolved]
  - Dizziness [Recovered/Resolved]
  - Nausea [Recovered/Resolved]
  - Lethargy [Recovered/Resolved]
  - Labelled drug-drug interaction medication error [None]
